FAERS Safety Report 5619324-5 (Version None)
Quarter: 2008Q1

REPORT INFORMATION
  Report Type: 
  Country: None (occurrence: None)
  Receive Date: 20080114
  Receipt Date: 20070313
  Transmission Date: 20080703
  Serious: Yes (Hospitalization)
  Sender: FDA-Public Use
  Company Number: A03200701990

PATIENT
  Age: 84 Year
  Sex: Female
  Weight: 54.42 kg

DRUGS (3)
  1. PLAVIX [Suspect]
     Indication: CEREBROVASCULAR ACCIDENT
     Dosage: 75 MG QD - ORAL
     Route: 048
     Dates: start: 20030101, end: 20060101
  2. ATORVASTATIN [Concomitant]
  3. CELECOXIB [Concomitant]

REACTIONS (1)
  - CEREBROVASCULAR ACCIDENT [None]
